FAERS Safety Report 22356995 (Version 6)
Quarter: 2024Q1

REPORT INFORMATION
  Report Type: Report from Study
  Country: US (occurrence: US)
  Receive Date: 20230523
  Receipt Date: 20240213
  Transmission Date: 20240410
  Serious: Yes (Other)
  Sender: FDA-Public Use
  Company Number: US-ABBVIE-5174001

PATIENT
  Age: 65 Year
  Sex: Female
  Weight: 56.699 kg

DRUGS (17)
  1. HUMIRA [Suspect]
     Active Substance: ADALIMUMAB
     Indication: Rheumatoid arthritis
     Dosage: FREQUENCY TEXT: 2 WEEKS ?FORM STRENGTH: 40 MILLIGRAM
     Route: 058
     Dates: start: 20220301, end: 20230828
  2. HUMIRA [Suspect]
     Active Substance: ADALIMUMAB
     Indication: Rheumatoid arthritis
     Dosage: FREQUENCY TEXT: 2 WEEKS ?FORM STRENGTH: 40 MILLIGRAM
     Route: 058
     Dates: start: 202108
  3. HUMIRA [Suspect]
     Active Substance: ADALIMUMAB
     Indication: Rheumatoid arthritis
     Dosage: FORM STRENGTH: 40 MILLIGRAM?FREQUENCY TEXT: 2 WEEKS
     Route: 058
  4. HUMIRA [Suspect]
     Active Substance: ADALIMUMAB
     Indication: Rheumatoid arthritis
  5. GABAPENTIN [Concomitant]
     Active Substance: GABAPENTIN
     Indication: Product used for unknown indication
  6. OMEPRAZOLE [Concomitant]
     Active Substance: OMEPRAZOLE
     Indication: Product used for unknown indication
  7. TRIAMCINOLONE ACETONIDE [Concomitant]
     Active Substance: TRIAMCINOLONE ACETONIDE
     Indication: Product used for unknown indication
  8. NAPROXEN SODIUM [Concomitant]
     Active Substance: NAPROXEN\NAPROXEN SODIUM
     Indication: Product used for unknown indication
  9. ADVIL [Concomitant]
     Active Substance: IBUPROFEN
     Indication: Product used for unknown indication
  10. CELEBREX [Concomitant]
     Active Substance: CELECOXIB
     Indication: Product used for unknown indication
  11. ALBUTEROL [Concomitant]
     Active Substance: ALBUTEROL
     Indication: Product used for unknown indication
  12. XANAX [Concomitant]
     Active Substance: ALPRAZOLAM
     Indication: Product used for unknown indication
  13. AMLODIPINE BESYLATE [Concomitant]
     Active Substance: AMLODIPINE BESYLATE
     Indication: Product used for unknown indication
  14. VITAMIN D [Concomitant]
     Active Substance: VITAMIN D NOS
     Indication: Product used for unknown indication
  15. PEPCID [Concomitant]
     Active Substance: FAMOTIDINE
     Indication: Product used for unknown indication
  16. NORVASC [Concomitant]
     Active Substance: AMLODIPINE BESYLATE
     Indication: Blood pressure management
  17. XELJANZ [Suspect]
     Active Substance: TOFACITINIB CITRATE
     Indication: Product used for unknown indication
     Route: 065

REACTIONS (29)
  - Rheumatoid arthritis [Not Recovered/Not Resolved]
  - Procedural complication [Not Recovered/Not Resolved]
  - Visual impairment [Unknown]
  - Rheumatoid arthritis [Recovered/Resolved]
  - Dyspnoea [Recovered/Resolved]
  - Gingival abscess [Unknown]
  - Pustular psoriasis [Not Recovered/Not Resolved]
  - Chest pain [Unknown]
  - Bone loss [Unknown]
  - Back disorder [Unknown]
  - Nasal congestion [Unknown]
  - Gait inability [Not Recovered/Not Resolved]
  - Respiratory tract infection [Recovered/Resolved]
  - Dry eye [Unknown]
  - Dental operation [Not Recovered/Not Resolved]
  - Skin infection [Not Recovered/Not Resolved]
  - Oropharyngeal pain [Unknown]
  - Arthralgia [Unknown]
  - Insomnia [Not Recovered/Not Resolved]
  - Device related infection [Unknown]
  - Rheumatoid arthritis [Unknown]
  - Tooth extraction [Unknown]
  - Oral infection [Recovered/Resolved]
  - Diarrhoea [Unknown]
  - Localised infection [Recovered/Resolved]
  - Respiratory tract congestion [Recovered/Resolved]
  - Chest discomfort [Recovered/Resolved]
  - Burning sensation [Unknown]
  - Oral pustule [Unknown]

NARRATIVE: CASE EVENT DATE: 20210320
